FAERS Safety Report 24111987 (Version 3)
Quarter: 2024Q3

REPORT INFORMATION
  Report Type: Spontaneous
  Country: US (occurrence: US)
  Receive Date: 20240718
  Receipt Date: 20240918
  Transmission Date: 20241016
  Serious: No
  Sender: BAUSCH AND LOMB
  Company Number: US-BAUSCHBL-2024BNL029923

PATIENT
  Age: 87 Year
  Sex: Female

DRUGS (2)
  1. VYZULTA [Suspect]
     Active Substance: LATANOPROSTENE BUNOD
     Indication: Glaucoma
     Dosage: TOOK 1 DROP INTO EACH EYE ONCE DAILY AT NIGHT FOR THE LAST COUPLE YEARS
     Route: 047
  2. VYZULTA [Suspect]
     Active Substance: LATANOPROSTENE BUNOD
     Indication: Intraocular pressure test
     Dosage: NEW BOTTLE
     Route: 047
     Dates: start: 20240514

REACTIONS (8)
  - Dizziness [Recovered/Resolved]
  - Visual impairment [Recovered/Resolved]
  - Product delivery mechanism issue [Unknown]
  - Product quality issue [Unknown]
  - Exposure via skin contact [Unknown]
  - Accidental exposure to product [Unknown]
  - Product use complaint [Unknown]
  - No adverse event [Unknown]

NARRATIVE: CASE EVENT DATE: 20240101
